FAERS Safety Report 8017173-4 (Version None)
Quarter: 2012Q1

REPORT INFORMATION
  Report Type: 
  Country: None (occurrence: None)
  Receive Date: 20120102
  Receipt Date: 20111220
  Transmission Date: 20120608
  Serious: Yes (Other)
  Sender: FDA-Public Use
  Company Number: US-ROCHE-797091

PATIENT
  Sex: Female
  Weight: 48.124 kg

DRUGS (2)
  1. BIRTH CONTROL PILL (UNK INGREDIENTS) [Concomitant]
  2. ACCUTANE [Suspect]
     Indication: ACNE
     Route: 065
     Dates: start: 19980301, end: 19980505

REACTIONS (6)
  - INFLAMMATORY BOWEL DISEASE [None]
  - IRRITABLE BOWEL SYNDROME [None]
  - ANXIETY [None]
  - CROHN'S DISEASE [None]
  - DEPRESSION [None]
  - COLITIS ULCERATIVE [None]
